FAERS Safety Report 7831530-8 (Version None)
Quarter: 2011Q4

REPORT INFORMATION
  Report Type: 
  Country: None (occurrence: None)
  Receive Date: 20111021
  Receipt Date: 20111018
  Transmission Date: 20120403
  Serious: Yes (Death, Other)
  Sender: FDA-Public Use
  Company Number: PHHY2011RS91721

PATIENT
  Sex: Male

DRUGS (7)
  1. AMOXICILLIN AND CLAVULANATE POTASSIUM [Suspect]
     Indication: INFECTION
     Dosage: 1.2 G, BID
     Route: 042
     Dates: start: 20110929, end: 20110929
  2. AMINOSOL [Concomitant]
  3. KLINDAMYCIN [Concomitant]
     Dosage: 300 G, Q8H
  4. HARTMANN [Concomitant]
  5. RANISAN [Concomitant]
  6. AMINOPHYLIN [Concomitant]
  7. FRAXIPARINE [Concomitant]
     Dosage: 0.4 ML, QD

REACTIONS (4)
  - VASCULITIS [None]
  - SKIN DISCOLOURATION [None]
  - DEATH [None]
  - GENERAL PHYSICAL HEALTH DETERIORATION [None]
